FAERS Safety Report 6046237-X (Version None)
Quarter: 2009Q1

REPORT INFORMATION
  Report Type: 
  Country: None (occurrence: None)
  Receive Date: 20090122
  Receipt Date: 20090107
  Transmission Date: 20090719
  Serious: Yes (Hospitalization, Other)
  Sender: FDA-Public Use
  Company Number: ES-ELI_LILLY_AND_COMPANY-ES200901001156

PATIENT
  Age: 71 Year
  Sex: Female

DRUGS (7)
  1. FORTEO [Suspect]
     Indication: OSTEOPOROSIS
     Dosage: 20 UG, UNK
     Dates: start: 20071101, end: 20081207
  2. NAVIXEN [Concomitant]
  3. ARANESP [Concomitant]
  4. ADIRO [Concomitant]
     Dosage: 100 MG, UNK
  5. OMEPRAZOLE [Concomitant]
     Dosage: 20 MG, UNK
  6. TARDYFERON [Concomitant]
  7. CARDIL [Concomitant]
     Dosage: 20 MG, UNK

REACTIONS (3)
  - BLOOD GLUCOSE INCREASED [None]
  - LOSS OF CONSCIOUSNESS [None]
  - VERTIGO [None]
